FAERS Safety Report 11866461 (Version 1)
Quarter: 2015Q4

REPORT INFORMATION
  Report Type: Spontaneous
  Country: US (occurrence: US)
  Receive Date: 20151224
  Receipt Date: 20151224
  Transmission Date: 20160305
  Serious: Yes (Other)
  Sender: FDA-Public Use
  Company Number: US-AMGEN-USASP2015135695

PATIENT
  Age: 50 Year
  Sex: Male
  Weight: 97.52 kg

DRUGS (1)
  1. ENBREL [Suspect]
     Active Substance: ETANERCEPT
     Indication: PSORIASIS
     Dosage: UNK
     Route: 065

REACTIONS (10)
  - Sarcoidosis [Unknown]
  - Hypertension [Unknown]
  - Muscle spasms [Unknown]
  - Hypoaesthesia [Unknown]
  - Osteonecrosis [Unknown]
  - Pain [Unknown]
  - Motion sickness [Unknown]
  - Feeling drunk [Unknown]
  - Bipolar disorder [Unknown]
  - Intervertebral disc protrusion [Unknown]
